FAERS Safety Report 7609760-X (Version None)
Quarter: 2011Q3

REPORT INFORMATION
  Report Type: 
  Country: None (occurrence: None)
  Receive Date: 20110714
  Receipt Date: 20110712
  Transmission Date: 20111222
  Serious: Yes (Death, Other)
  Sender: FDA-Public Use
  Company Number: BR-ABBOTT-11P-020-0838506-00

PATIENT
  Sex: Female
  Weight: 70 kg

DRUGS (2)
  1. LOSARTAN [Concomitant]
     Indication: BLOOD PRESSURE
  2. HUMIRA [Suspect]
     Indication: RHEUMATOID ARTHRITIS

REACTIONS (13)
  - BEDRIDDEN [None]
  - RESPIRATORY FAILURE [None]
  - CARDIOMEGALY [None]
  - DIABETES MELLITUS [None]
  - CARDIAC ARREST [None]
  - BLOOD GLUCOSE DECREASED [None]
  - BLOOD PRESSURE DECREASED [None]
  - ESCHAR [None]
  - HYPOPHAGIA [None]
  - ENDOTRACHEAL INTUBATION [None]
  - BLOOD SODIUM DECREASED [None]
  - INFECTION [None]
  - CARDIAC DISORDER [None]
